FAERS Safety Report 6915123-2 (Version None)
Quarter: 2010Q3

REPORT INFORMATION
  Report Type: 
  Country: None (occurrence: None)
  Receive Date: 20100809
  Receipt Date: 20071012
  Transmission Date: 20110219
  Serious: Yes (Other)
  Sender: FDA-Public Use
  Company Number: SK-PFIZER INC-2007085366

PATIENT
  Sex: Male

DRUGS (1)
  1. DALACIN [Suspect]
     Indication: BRONCHITIS
     Dosage: 100 MG, 3X/DAY
     Route: 048
     Dates: start: 20070924, end: 20070924

REACTIONS (4)
  - ABDOMINAL PAIN [None]
  - DIARRHOEA [None]
  - HEADACHE [None]
  - VOMITING [None]
